FAERS Safety Report 10340021 (Version 1)
Quarter: 2014Q3

REPORT INFORMATION
  Report Type: Report from Study
  Country: CA (occurrence: CA)
  Receive Date: 20140724
  Receipt Date: 20140724
  Transmission Date: 20150326
  Serious: Yes (Life-Threatening, Hospitalization)
  Sender: FDA-Public Use
  Company Number: CA-JNJFOC-20140712315

PATIENT
  Age: 52 Year
  Sex: Female
  Weight: 59 kg

DRUGS (9)
  1. METHADONE [Concomitant]
     Active Substance: METHADONE HYDROCHLORIDE
     Route: 048
  2. CLONIDINE. [Concomitant]
     Active Substance: CLONIDINE
     Indication: HOT FLUSH
     Route: 065
  3. HYDROMORPHONE [Concomitant]
     Active Substance: HYDROMORPHONE
     Dosage: 3MG OF AM AND 6 MG AT HS
     Route: 065
  4. RAMIPRIL. [Concomitant]
     Active Substance: RAMIPRIL
     Route: 048
  5. REMICADE [Suspect]
     Active Substance: INFLIXIMAB
     Indication: JUVENILE IDIOPATHIC ARTHRITIS
     Dosage: 12 YEARS AND 10 MONTHS (ALSO REPORTED AS 12 YEARS 6 MONTHS)
     Route: 042
     Dates: start: 20010223, end: 20131230
  6. METHOTREXATE [Concomitant]
     Active Substance: METHOTREXATE
     Route: 058
  7. CITALOPRAM [Concomitant]
     Active Substance: CITALOPRAM HYDROBROMIDE
     Route: 065
  8. CYCLOBENZAPRINE [Concomitant]
     Active Substance: CYCLOBENZAPRINE
     Route: 065
  9. ROSUVASTATIN [Concomitant]
     Active Substance: ROSUVASTATIN
     Route: 048

REACTIONS (6)
  - Enterovesical fistula [Recovered/Resolved]
  - Tooth fracture [Recovered/Resolved]
  - Tooth abscess [Recovered/Resolved]
  - Shoulder arthroplasty [Recovered/Resolved]
  - Cystitis [Recovered/Resolved]
  - Benign neoplasm of bladder [Recovered/Resolved]

NARRATIVE: CASE EVENT DATE: 20140319
